FAERS Safety Report 10692679 (Version 1)
Quarter: 2015Q1

REPORT INFORMATION
  Report Type: Spontaneous
  Country: FR (occurrence: FR)
  Receive Date: 20150106
  Receipt Date: 20150106
  Transmission Date: 20150720
  Serious: Yes (Hospitalization)
  Sender: FDA-Public Use
  Company Number: FR-AUROBINDO-AUR-APL-2015-00004

PATIENT
  Age: 80 Year
  Sex: Female

DRUGS (8)
  1. AZILECT [Concomitant]
     Active Substance: RASAGILINE MESYLATE
     Indication: PRODUCT USED FOR UNKNOWN INDICATION
     Dosage: 1 MG, UNK
     Route: 065
  2. LAMOTRIGINE ARROW 25MG [Suspect]
     Active Substance: LAMOTRIGINE
     Dosage: 25 MG, ONCE A DAY
     Route: 048
     Dates: end: 20141220
  3. FLODIL        LP                     /00646501/ [Concomitant]
     Indication: PRODUCT USED FOR UNKNOWN INDICATION
     Dosage: 5 MG, COATED TABLET
     Route: 065
  4. TOPALGIC LP [Concomitant]
     Active Substance: TRAMADOL
     Indication: PRODUCT USED FOR UNKNOWN INDICATION
     Dosage: 100 MG, UNK
     Route: 065
  5. TRANDATE [Concomitant]
     Active Substance: LABETALOL HYDROCHLORIDE
     Indication: PRODUCT USED FOR UNKNOWN INDICATION
     Dosage: UNK
     Route: 065
  6. MODOPAR [Concomitant]
     Active Substance: BENSERAZIDE HYDROCHLORIDE\LEVODOPA
     Indication: PRODUCT USED FOR UNKNOWN INDICATION
     Dosage: 125 MG,SCORED TABLET FOR ORAL SUSPENSION
     Route: 048
  7. LAMOTRIGINE ARROW 25MG [Suspect]
     Active Substance: LAMOTRIGINE
     Indication: PARTIAL SEIZURES
     Dosage: 25 MG, TWO TIMES A DAY
     Route: 048
     Dates: start: 20141125
  8. CRESTOR [Concomitant]
     Active Substance: ROSUVASTATIN CALCIUM
     Indication: PRODUCT USED FOR UNKNOWN INDICATION
     Dosage: 10 MG, UNK
     Route: 065

REACTIONS (7)
  - Aggression [Unknown]
  - Disorientation [Unknown]
  - Wound [Unknown]
  - Speech disorder [Unknown]
  - Fall [Unknown]
  - Hallucination, visual [Not Recovered/Not Resolved]
  - Injury [Unknown]

NARRATIVE: CASE EVENT DATE: 20141204
